FAERS Safety Report 8830401 (Version 1)
Quarter: 2012Q4

REPORT INFORMATION
  Report Type: 
  Country: JP (occurrence: JP)
  Receive Date: 20121009
  Receipt Date: 20121009
  Transmission Date: 20130627
  Serious: Yes (Hospitalization)
  Sender: FDA-Public Use
  Company Number: JP-SANOFI-AVENTIS-2012SA072952

PATIENT
  Age: 64 Year
  Sex: Male

DRUGS (4)
  1. FUROSEMIDE [Suspect]
     Indication: PULMONARY OEDEMA
     Route: 065
     Dates: start: 2012
  2. CARPERITIDE [Suspect]
     Indication: PULMONARY OEDEMA
     Route: 065
     Dates: start: 2012
  3. ALBUMIN [Suspect]
     Indication: PULMONARY OEDEMA
     Route: 065
     Dates: start: 2012
  4. DIURETICS [Concomitant]
     Indication: OEDEMA LOWER LIMB

REACTIONS (1)
  - Organising pneumonia [Recovering/Resolving]
